FAERS Safety Report 9094358 (Version 3)
Quarter: 2013Q1

REPORT INFORMATION
  Report Type: Spontaneous
  Country: BE (occurrence: None)
  Receive Date: 20120907
  Receipt Date: 20121121
  Transmission Date: 20140127
  Serious: Yes (Hospitalization)
  Sender: FDA-Public Use
  Company Number: ACO_31263_2012

PATIENT
  Age: 59 Year
  Sex: Male

DRUGS (5)
  1. FAMPRIDINE-SR (FAMPRIDINE) TABLET [Suspect]
     Indication: MULTIPLE SCLEROSIS
     Dosage: 10 MG,  BID,  ORAL?05/21/2012  TO  ONGOING
     Route: 048
     Dates: start: 20120521
  2. SIPRALEXA  /01588501/  (ESCITALOPRAM) [Concomitant]
  3. ALPRAZOLAM (ALPRAZOLAM) [Concomitant]
  4. COVERSYL  /00790702/  (PERINDOPRIL ERBUMINE) [Concomitant]
  5. RIVOTRIL (CLONAZEPAM) [Concomitant]

REACTIONS (3)
  - Abdominal pain [None]
  - Cholecystectomy [None]
  - Cholecystitis acute [None]
